FAERS Safety Report 8574034-X (Version None)
Quarter: 2012Q3

REPORT INFORMATION
  Report Type: 
  Country: None (occurrence: None)
  Receive Date: 20120806
  Receipt Date: 20120724
  Transmission Date: 20120928
  Serious: Yes (Hospitalization)
  Sender: FDA-Public Use
  Company Number: US-ELI_LILLY_AND_COMPANY-US201207007755

PATIENT
  Age: 48 Year
  Sex: Female

DRUGS (6)
  1. CYMBALTA [Suspect]
     Dosage: 60MG, DAILY
     Dates: start: 20120501, end: 20120601
  2. TOPAMAX [Concomitant]
  3. ENABLEX [Concomitant]
     Indication: BLADDER DYSFUNCTION
  4. CYMBALTA [Suspect]
     Dosage: 60MG, DAILY
     Dates: start: 20120601
  5. CYMBALTA [Suspect]
     Indication: FIBROMYALGIA
     Dosage: 60MG, DAILY
     Dates: start: 20070101, end: 20120401
  6. PERCOCET [Concomitant]

REACTIONS (7)
  - DRUG WITHDRAWAL SYNDROME [None]
  - URINARY INCONTINENCE [None]
  - SURGERY [None]
  - ANGER [None]
  - INTENTIONAL DRUG MISUSE [None]
  - MOOD ALTERED [None]
  - IRRITABILITY [None]
